FAERS Safety Report 23625037 (Version 3)
Quarter: 2024Q4

REPORT INFORMATION
  Report Type: Spontaneous
  Country: VN (occurrence: VN)
  Receive Date: 20240313
  Receipt Date: 20241017
  Transmission Date: 20250115
  Serious: No
  Sender: ROCHE
  Company Number: VN-ROCHE-3511580

PATIENT
  Age: 40 Month
  Sex: Male

DRUGS (1)
  1. HEMLIBRA [Suspect]
     Active Substance: EMICIZUMAB-KXWH
     Indication: Factor VIII deficiency
     Dosage: LOADING DOSE OF EMICIZUMAB 3 MG/KG/W?MAINTENANCE DOSE OF EMICIZUMAB 5.5 MG/KG/4WEEK
     Route: 065
     Dates: start: 20221205

REACTIONS (3)
  - Contusion [Unknown]
  - Ocular hyperaemia [Unknown]
  - Off label use [Unknown]
